APPROVED DRUG PRODUCT: LOPERAMIDE HYDROCHLORIDE
Active Ingredient: LOPERAMIDE HYDROCHLORIDE
Strength: 1MG/5ML
Dosage Form/Route: SOLUTION;ORAL
Application: A074730 | Product #001
Applicant: WOCKHARDT BIO AG
Approved: Aug 28, 1997 | RLD: No | RS: No | Type: DISCN